FAERS Safety Report 10778845 (Version 1)
Quarter: 2015Q1

REPORT INFORMATION
  Report Type: Report from Study
  Country: US (occurrence: US)
  Receive Date: 20150210
  Receipt Date: 20150210
  Transmission Date: 20150721
  Serious: Yes (Hospitalization, Other)
  Sender: FDA-Public Use
  Company Number: US-ROCHE-1524981

PATIENT
  Age: 79 Year
  Sex: Female

DRUGS (3)
  1. LUCENTIS [Suspect]
     Active Substance: RANIBIZUMAB
     Indication: AGE-RELATED MACULAR DEGENERATION
     Dosage: RIGHT, MOST RECENT DOSE REVCEIVED ON 02/FEB/2015.
     Route: 050
     Dates: start: 20130409
  2. ASPIRIN. [Concomitant]
     Active Substance: ASPIRIN
  3. LUCENTIS [Suspect]
     Active Substance: RANIBIZUMAB
     Indication: MACULAR DEGENERATION

REACTIONS (6)
  - Neoplasm malignant [Unknown]
  - Memory impairment [Unknown]
  - Visual impairment [Not Recovered/Not Resolved]
  - Transient ischaemic attack [Recovered/Resolved]
  - Cerebrovascular accident [Unknown]
  - Cerebrovascular accident [Recovered/Resolved]

NARRATIVE: CASE EVENT DATE: 20141107
